FAERS Safety Report 7137805-2 (Version None)
Quarter: 2010Q4

REPORT INFORMATION
  Report Type: 
  Country: None (occurrence: None)
  Receive Date: 20101206
  Receipt Date: 20101122
  Transmission Date: 20110411
  Serious: Yes (Other)
  Sender: FDA-Public Use
  Company Number: PHHY2010RO79309

PATIENT
  Sex: Female

DRUGS (4)
  1. EXFORGE [Suspect]
     Indication: HYPERTENSION
     Dosage: 10/160 MG, UNK
  2. TRIFLUSAL [Concomitant]
     Dosage: 300 MG, DAY
  3. SIMVACARD [Concomitant]
     Dosage: 20 MG, DAY
  4. NEBIVOLOL HCL [Concomitant]
     Dosage: 5 MG, DAY

REACTIONS (2)
  - FACE OEDEMA [None]
  - OEDEMA PERIPHERAL [None]
